FAERS Safety Report 8565928 (Version 2)
Quarter: 2013Q1

REPORT INFORMATION
  Report Type: Spontaneous
  Country: US (occurrence: US)
  Receive Date: 20120516
  Receipt Date: 20130201
  Transmission Date: 20140127
  Serious: Yes (Other)
  Sender: FDA-Public Use
  Company Number: PHHY2012US040661

PATIENT
  Age: 11 Year
  Sex: Male

DRUGS (5)
  1. TACROLIMUS [Suspect]
     Indication: IMMUNOSUPPRESSION
  2. MYCOPHENOLATE MOFETIL [Concomitant]
  3. CORTICOSTEROIDS [Concomitant]
  4. BROAD SPECTRUM ANTIBIOTICS [Concomitant]
  5. ANTIFUNGALS [Concomitant]

REACTIONS (8)
  - Osmotic demyelination syndrome [Recovered/Resolved]
  - Demyelination [Recovered/Resolved]
  - Pyrexia [Recovered/Resolved]
  - Unresponsive to stimuli [Recovered/Resolved]
  - Hyporeflexia [Recovered/Resolved]
  - Clonus [Recovered/Resolved]
  - Extensor plantar response [Recovered/Resolved]
  - Areflexia [Recovered/Resolved]
